FAERS Safety Report 14108023 (Version 2)
Quarter: 2018Q1

REPORT INFORMATION
  Report Type: Spontaneous
  Country: JP (occurrence: JP)
  Receive Date: 20171019
  Receipt Date: 20180108
  Transmission Date: 20180508
  Serious: Yes (Hospitalization, Disabling, Other)
  Sender: FDA-Public Use
  Company Number: JP-SA-2017SA200824

PATIENT
  Sex: Female
  Weight: 41 kg

DRUGS (21)
  1. OXALIPLATIN. [Suspect]
     Active Substance: OXALIPLATIN
     Indication: RECTAL CANCER
     Dosage: INJECTION
     Route: 041
     Dates: start: 20170425, end: 20170425
  2. TS-1 [Concomitant]
     Active Substance: GIMERACIL\OTERACIL\TEGAFUR
     Route: 065
     Dates: start: 20170425, end: 20170425
  3. VITAMEDIN [Concomitant]
     Active Substance: CYANOCOBALAMIN\PYRIDOXINE HYDROCHLORIDE\THIAMINE
     Route: 065
     Dates: start: 20170808, end: 20170808
  4. OXALIPLATIN. [Suspect]
     Active Substance: OXALIPLATIN
     Indication: RECTAL CANCER
     Dosage: INJECTION
     Route: 041
     Dates: start: 20170808, end: 20170808
  5. TS-1 [Concomitant]
     Active Substance: GIMERACIL\OTERACIL\TEGAFUR
     Route: 065
     Dates: start: 20170808, end: 20170808
  6. TS-1 [Concomitant]
     Active Substance: GIMERACIL\OTERACIL\TEGAFUR
     Route: 065
     Dates: start: 20170829, end: 20170829
  7. KYTRIL [Concomitant]
     Active Substance: GRANISETRON HYDROCHLORIDE
     Route: 065
     Dates: start: 20170425, end: 20170829
  8. BFLUID [Concomitant]
     Active Substance: AMINO ACIDS\DEXTROSE\ELECTROLYTES NOS\VITAMINS
     Route: 065
     Dates: start: 20170808, end: 20170808
  9. OXALIPLATIN. [Suspect]
     Active Substance: OXALIPLATIN
     Indication: RECTAL CANCER
     Dosage: INJECTION
     Route: 041
     Dates: start: 20170718, end: 20170718
  10. OXALIPLATIN. [Suspect]
     Active Substance: OXALIPLATIN
     Indication: RECTAL CANCER
     Dosage: INJECTION
     Route: 041
     Dates: start: 20170516, end: 20170516
  11. LOPERAMIDE [Concomitant]
     Active Substance: LOPERAMIDE
  12. TS-1 [Concomitant]
     Active Substance: GIMERACIL\OTERACIL\TEGAFUR
     Route: 065
     Dates: start: 20170606, end: 20170606
  13. DEXART [Concomitant]
     Active Substance: DEXAMETHASONE SODIUM PHOSPHATE
     Route: 065
     Dates: start: 20170425, end: 20170829
  14. TS-1 [Concomitant]
     Active Substance: GIMERACIL\OTERACIL\TEGAFUR
     Route: 065
     Dates: start: 20170516, end: 20170516
  15. TS-1 [Concomitant]
     Active Substance: GIMERACIL\OTERACIL\TEGAFUR
     Route: 065
     Dates: start: 20171003, end: 20171003
  16. OXALIPLATIN. [Suspect]
     Active Substance: OXALIPLATIN
     Indication: RECTAL CANCER
     Dosage: INJECTION
     Route: 041
     Dates: start: 20170829, end: 20170829
  17. OXALIPLATIN. [Suspect]
     Active Substance: OXALIPLATIN
     Indication: RECTAL CANCER
     Dosage: INJECTION
     Route: 041
     Dates: start: 20170606, end: 20170606
  18. TS-1 [Concomitant]
     Active Substance: GIMERACIL\OTERACIL\TEGAFUR
     Route: 065
     Dates: start: 20170718, end: 20170718
  19. OXALIPLATIN. [Suspect]
     Active Substance: OXALIPLATIN
     Indication: RECTAL CANCER
     Dosage: INJECTION
     Route: 041
     Dates: start: 20170627, end: 20170627
  20. TS-1 [Concomitant]
     Active Substance: GIMERACIL\OTERACIL\TEGAFUR
     Route: 065
     Dates: start: 20170627, end: 20170627
  21. NAUZELIN [Concomitant]
     Active Substance: DOMPERIDONE

REACTIONS (8)
  - Vomiting [Unknown]
  - Nausea [Unknown]
  - Ascites [Recovering/Resolving]
  - Urinary tract infection [Unknown]
  - Pleural effusion [Recovering/Resolving]
  - Diarrhoea [Unknown]
  - Pneumonia [Recovering/Resolving]
  - Decreased appetite [Unknown]

NARRATIVE: CASE EVENT DATE: 20171003
